FAERS Safety Report 6447611-X (Version None)
Quarter: 2009Q4

REPORT INFORMATION
  Report Type: 
  Country: None (occurrence: None)
  Receive Date: 20091119
  Receipt Date: 20091109
  Transmission Date: 20100525
  Serious: Yes (Death)
  Sender: FDA-Public Use
  Company Number: MW-GILEAD-2009-0025514

PATIENT
  Sex: Female

DRUGS (4)
  1. EMTRIVA [Suspect]
     Indication: HIV INFECTION
     Route: 064
     Dates: start: 20081009
  2. TRUVADA [Suspect]
     Indication: HIV INFECTION
     Route: 064
     Dates: start: 20070523, end: 20081009
  3. ZIDOVUDINE [Concomitant]
     Route: 064
     Dates: start: 20081009
  4. KALETRA [Concomitant]
     Route: 064

REACTIONS (1)
  - DEATH NEONATAL [None]
